FAERS Safety Report 9240753 (Version 1)
Quarter: 2013Q2

REPORT INFORMATION
  Report Type: Spontaneous
  Country: US (occurrence: US)
  Receive Date: 20130418
  Receipt Date: 20130418
  Transmission Date: 20140414
  Serious: No
  Sender: FDA-Public Use
  Company Number: US-BAYER-2013-047540

PATIENT
  Age: 33 Year
  Sex: Female

DRUGS (1)
  1. FINACEA [Suspect]
     Indication: ACNE
     Dosage: ONCE A DAY AT NIGHT
     Route: 061
     Dates: start: 20130318

REACTIONS (2)
  - Rash macular [None]
  - Drug ineffective [None]
